FAERS Safety Report 24235031 (Version 5)
Quarter: 2025Q1

REPORT INFORMATION
  Report Type: Report from Study
  Country: TR (occurrence: TR)
  Receive Date: 20240821
  Receipt Date: 20250331
  Transmission Date: 20250408
  Serious: Yes (Other)
  Sender: PFIZER
  Company Number: TR-PFIZER INC-PV202300067809

PATIENT
  Age: 55 Year
  Sex: Female

DRUGS (1)
  1. ELRANATAMAB [Suspect]
     Active Substance: ELRANATAMAB
     Indication: Plasma cell myeloma refractory

REACTIONS (6)
  - Hypogammaglobulinaemia [Not Recovered/Not Resolved]
  - Cytomegalovirus infection [Unknown]
  - Neutropenia [Recovered/Resolved]
  - Cytomegalovirus infection reactivation [Unknown]
  - Second primary malignancy [Unknown]
  - Acute leukaemia [Unknown]
